FAERS Safety Report 10416292 (Version 1)
Quarter: 2014Q3

REPORT INFORMATION
  Report Type: Spontaneous
  Country: US (occurrence: US)
  Receive Date: 20140828
  Receipt Date: 20140828
  Transmission Date: 20150326
  Serious: No
  Sender: FDA-Public Use
  Company Number: US-009507513-1408USA014769

PATIENT
  Age: 48 Year
  Sex: Female

DRUGS (3)
  1. HYDROCORTISONE. [Suspect]
     Active Substance: HYDROCORTISONE
     Indication: RASH PAPULAR
  2. HYDROCORTISONE. [Suspect]
     Active Substance: HYDROCORTISONE
     Indication: RASH PRURITIC
     Route: 061
  3. HYDROCORTISONE. [Suspect]
     Active Substance: HYDROCORTISONE
     Indication: RASH ERYTHEMATOUS

REACTIONS (2)
  - Drug ineffective [Unknown]
  - Hysteroscopy [Unknown]
